FAERS Safety Report 6317233-X (Version None)
Quarter: 2009Q3

REPORT INFORMATION
  Report Type: 
  Country: None (occurrence: None)
  Receive Date: 20090819
  Receipt Date: 20090804
  Transmission Date: 20100115
  Serious: Yes (Hospitalization)
  Sender: FDA-Public Use
  Company Number: 8047656

PATIENT
  Age: 43 Year
  Sex: Female

DRUGS (2)
  1. CIMZIA [Suspect]
     Indication: CROHN'S DISEASE
     Dosage: 400 MG SC
     Route: 058
     Dates: start: 20090410, end: 20090609
  2. PREDNISONE [Concomitant]

REACTIONS (4)
  - PAIN [None]
  - RASH MACULO-PAPULAR [None]
  - RASH PRURITIC [None]
  - URINARY TRACT INFECTION [None]
